FAERS Safety Report 9221674 (Version 1)
Quarter: 2013Q2

REPORT INFORMATION
  Report Type: Report from Study
  Country: SG (occurrence: SG)
  Receive Date: 20130410
  Receipt Date: 20130410
  Transmission Date: 20140414
  Serious: Yes (Death, Hospitalization)
  Sender: FDA-Public Use
  Company Number: SG-BAYER-2013-041614

PATIENT
  Age: 58 Year
  Sex: Female

DRUGS (5)
  1. STIVARGA [Suspect]
     Indication: COLON CANCER METASTATIC
     Dosage: 160MG PER DAY, 3 OUT OF 4 WEEKS
     Route: 048
     Dates: start: 20130304, end: 20130317
  2. STIVARGA [Suspect]
     Indication: COLON CANCER METASTATIC
     Dosage: 80MG PER DAY DOSE REDUCED FOR FATIGUE
     Route: 048
     Dates: start: 20130311, end: 20130318
  3. MEGACE [Concomitant]
     Dosage: LONGSTANDING
     Route: 048
  4. ARCOXIA [Concomitant]
     Dosage: 60 MG, BID, PRN , LONGSTANDING
     Route: 048
  5. IMODIUM [LOPERAMIDE,SIMETICONE] [Concomitant]
     Dosage: 2 MG, QD, PRN
     Route: 048

REACTIONS (6)
  - Disseminated intravascular coagulation [Fatal]
  - Dehydration [Fatal]
  - Liver function test abnormal [None]
  - Diarrhoea [None]
  - Decreased appetite [None]
  - Disease progression [Fatal]
